FAERS Safety Report 8487870-5 (Version None)
Quarter: 2012Q3

REPORT INFORMATION
  Report Type: 
  Country: None (occurrence: None)
  Receive Date: 20120705
  Receipt Date: 20120628
  Transmission Date: 20120928
  Serious: Yes (Hospitalization, Disabling)
  Sender: FDA-Public Use
  Company Number: US-BAYER-2011-075077

PATIENT
  Age: 30 Year
  Sex: Female
  Weight: 51 kg

DRUGS (10)
  1. YAZ [Suspect]
     Indication: PREMENSTRUAL SYNDROME
  2. YASMIN [Suspect]
     Indication: ACNE
  3. YASMIN [Suspect]
     Indication: PREMENSTRUAL SYNDROME
  4. YAZ [Suspect]
     Indication: ORAL CONTRACEPTION
     Dosage: UNK
     Route: 048
     Dates: start: 20070701, end: 20090501
  5. RETIN-A [Concomitant]
     Indication: ACNE
     Dosage: UNK
     Dates: start: 20000101, end: 20010101
  6. YAZ [Suspect]
     Indication: ACNE
  7. RETIN-A [Concomitant]
     Dosage: UNK
     Dates: start: 20050101, end: 20110101
  8. MULTI-VITAMINS [Concomitant]
     Dosage: DAILY
     Dates: start: 20010101, end: 20100101
  9. NABUMETONE [Concomitant]
     Dosage: UNK
     Dates: start: 20090201, end: 20090301
  10. YASMIN [Suspect]
     Indication: ORAL CONTRACEPTION
     Dosage: UNK
     Route: 048
     Dates: start: 20050801, end: 20070601

REACTIONS (6)
  - DEFORMITY [None]
  - ANXIETY [None]
  - DEEP VEIN THROMBOSIS [None]
  - PULMONARY EMBOLISM [None]
  - PAIN [None]
  - ANHEDONIA [None]
